FAERS Safety Report 24716643 (Version 2)
Quarter: 2025Q1

REPORT INFORMATION
  Report Type: Spontaneous
  Country: JP (occurrence: JP)
  Receive Date: 20241210
  Receipt Date: 20250102
  Transmission Date: 20250409
  Serious: Yes (Hospitalization, Other)
  Sender: JOHNSON AND JOHNSON
  Company Number: JP-JNJFOC-20241215700

PATIENT
  Age: 76 Year
  Sex: Female

DRUGS (3)
  1. DARATUMUMAB [Suspect]
     Active Substance: DARATUMUMAB
     Indication: Plasma cell myeloma
     Route: 058
  2. DEXAMETHASONE [Suspect]
     Active Substance: DEXAMETHASONE
     Indication: Plasma cell myeloma
     Route: 065
  3. LENALIDOMIDE [Suspect]
     Active Substance: LENALIDOMIDE
     Indication: Plasma cell myeloma
     Route: 048

REACTIONS (3)
  - Pulmonary embolism [Unknown]
  - Cryptococcosis [Recovering/Resolving]
  - Mycotic endophthalmitis [Unknown]
